FAERS Safety Report 26116770 (Version 1)
Quarter: 2025Q4

REPORT INFORMATION
  Report Type: Spontaneous
  Country: US (occurrence: US)
  Receive Date: 20251203
  Receipt Date: 20251203
  Transmission Date: 20260118
  Serious: No
  Sender: BIOGEN
  Company Number: US-BIOGEN-2092332

PATIENT
  Age: 88 Year
  Sex: Female

DRUGS (5)
  1. AVONEX [Suspect]
     Active Substance: INTERFERON BETA-1A
     Indication: Product used for unknown indication
     Dates: start: 20080826, end: 20250317
  2. AVONEX [Suspect]
     Active Substance: INTERFERON BETA-1A
  3. AVONEX [Suspect]
     Active Substance: INTERFERON BETA-1A
  4. AVONEX [Suspect]
     Active Substance: INTERFERON BETA-1A
  5. AVONEX [Suspect]
     Active Substance: INTERFERON BETA-1A

REACTIONS (1)
  - Multiple sclerosis [Unknown]

NARRATIVE: CASE EVENT DATE: 20251120
